FAERS Safety Report 22537446 (Version 1)
Quarter: 2023Q2

REPORT INFORMATION
  Report Type: Spontaneous
  Country: US (occurrence: None)
  Receive Date: 20230607
  Receipt Date: 20230607
  Transmission Date: 20230722
  Serious: No
  Sender: FDA-Public Use
  Company Number: None

PATIENT
  Age: 41 Year
  Sex: Female
  Weight: 73.8 kg

DRUGS (2)
  1. REMICADE [Suspect]
     Active Substance: INFLIXIMAB
     Indication: Colitis ulcerative
     Dosage: OTHER FREQUENCY : Q8WEEKS;?
     Route: 041
     Dates: start: 20230607
  2. REMICADE [Concomitant]
     Active Substance: INFLIXIMAB
     Dates: start: 20230607, end: 20230607

REACTIONS (4)
  - Dyspnoea [None]
  - Flushing [None]
  - Infusion related reaction [None]
  - Erythema [None]

NARRATIVE: CASE EVENT DATE: 20230607
